FAERS Safety Report 9225370 (Version 1)
Quarter: 2013Q2

REPORT INFORMATION
  Report Type: Spontaneous
  Country: CH (occurrence: CH)
  Receive Date: 20130411
  Receipt Date: 20130411
  Transmission Date: 20140414
  Serious: Yes (Other)
  Sender: FDA-Public Use
  Company Number: CH-ELI_LILLY_AND_COMPANY-CH201304001217

PATIENT
  Age: 76 Year
  Sex: Male
  Weight: 91 kg

DRUGS (6)
  1. EFIENT [Suspect]
     Indication: ATRIAL FIBRILLATION
     Dosage: 10 MG, QD
     Route: 048
     Dates: start: 201110, end: 201205
  2. DIOVAN                                  /SCH/ [Concomitant]
     Dosage: 80 MG, QD
     Route: 048
  3. CONCOR [Concomitant]
     Dosage: 10 MG, QD
     Route: 048
  4. GLICLAZIDE [Concomitant]
     Dosage: 30 MG, QD
     Route: 048
  5. SORTIS                                  /SCH/ [Concomitant]
     Dosage: 10 MG, QD
     Route: 048
  6. ASA [Concomitant]
     Dosage: 100 MG, QD
     Route: 048

REACTIONS (5)
  - Sleep apnoea syndrome [Recovered/Resolved]
  - Weight increased [Unknown]
  - Arthropathy [Unknown]
  - Increased upper airway secretion [Unknown]
  - Off label use [Unknown]
